FAERS Safety Report 20012929 (Version 1)
Quarter: 2021Q4

REPORT INFORMATION
  Report Type: Spontaneous
  Country: DE (occurrence: DE)
  Receive Date: 20211029
  Receipt Date: 20211029
  Transmission Date: 20220303
  Serious: Yes (Other)
  Sender: FDA-Public Use
  Company Number: DE-PFIZER INC-202100917641

PATIENT
  Age: 34 Year
  Sex: Male

DRUGS (3)
  1. MITOMYCIN [Suspect]
     Active Substance: MITOMYCIN
     Indication: Anal squamous cell carcinoma
     Dosage: 10 MG/M2, ON DAY 1, 2 CYCLES
     Route: 042
  2. FLUOROURACIL [Suspect]
     Active Substance: FLUOROURACIL
     Indication: Anal squamous cell carcinoma
     Dosage: 1000 MG/M2, ON DAY 1-4, 2 CYCLES
     Route: 042
  3. GRANULOCYTE COLONY-STIMULATING FACTOR NOS [Concomitant]
     Active Substance: GRANULOCYTE COLONY-STIMULATING FACTOR NOS
     Indication: Prophylaxis
     Dosage: UNK
     Route: 065

REACTIONS (2)
  - Anal stenosis [Unknown]
  - Leukopenia [Unknown]
